FAERS Safety Report 8397499-5 (Version None)
Quarter: 2012Q2

REPORT INFORMATION
  Report Type: 
  Country: None (occurrence: None)
  Receive Date: 20120529
  Receipt Date: 20120529
  Transmission Date: 20120825
  Serious: Yes (Other)
  Sender: FDA-Public Use
  Company Number: None

PATIENT
  Sex: Female

DRUGS (2)
  1. PEGASYS [Suspect]
     Dosage: 180 MCG Q WEEK PO
     Route: 048
     Dates: start: 20120112, end: 20120524
  2. RIBAVIRIN [Suspect]
     Dosage: 1QAM 2 QPM PO
     Route: 048
     Dates: start: 20120112, end: 20120524

REACTIONS (4)
  - GASTROINTESTINAL DISORDER [None]
  - INSOMNIA [None]
  - FATIGUE [None]
  - PRURITUS [None]
